FAERS Safety Report 9392858 (Version 1)
Quarter: 2013Q3

REPORT INFORMATION
  Report Type: Spontaneous
  Country: US (occurrence: None)
  Receive Date: 20130708
  Receipt Date: 20130708
  Transmission Date: 20140515
  Serious: No
  Sender: FDA-Public Use
  Company Number: None

PATIENT
  Age: 31 Year
  Sex: Female

DRUGS (2)
  1. ZOLOFT [Suspect]
     Indication: DEPRESSION
     Route: 048
     Dates: start: 200504, end: 200506
  2. EFFEXOR XR [Suspect]
     Indication: ANXIETY
     Route: 048

REACTIONS (2)
  - Insomnia [None]
  - Abdominal discomfort [None]
